FAERS Safety Report 20438361 (Version 4)
Quarter: 2022Q1

REPORT INFORMATION
  Report Type: Spontaneous
  Country: US (occurrence: US)
  Receive Date: 20220207
  Receipt Date: 20220304
  Transmission Date: 20220423
  Serious: Yes (Other)
  Sender: FDA-Public Use
  Company Number: US-PFIZER INC-202200175524

PATIENT
  Age: 70 Year
  Sex: Female

DRUGS (1)
  1. PHENYTOIN SODIUM [Suspect]
     Active Substance: PHENYTOIN SODIUM
     Dosage: UNK

REACTIONS (8)
  - Brain injury [Unknown]
  - Mental impairment [Unknown]
  - Seizure [Not Recovered/Not Resolved]
  - Disease recurrence [Unknown]
  - Drug ineffective [Unknown]
  - Pyrexia [Unknown]
  - Memory impairment [Unknown]
  - Amnesia [Unknown]
